FAERS Safety Report 22760077 (Version 4)
Quarter: 2023Q4

REPORT INFORMATION
  Report Type: Spontaneous
  Country: GB (occurrence: GB)
  Receive Date: 20230728
  Receipt Date: 20231109
  Transmission Date: 20240109
  Serious: Yes (Life-Threatening, Hospitalization, Disabling, Congenital Anomaly, Other)
  Sender: FDA-Public Use
  Company Number: None

PATIENT
  Sex: Male

DRUGS (2)
  1. TOPIRAMATE [Suspect]
     Active Substance: TOPIRAMATE
     Indication: Migraine
     Dosage: TRYING TO WITHDRAW FROM TOPIRAMATE BUT OTHER MEDICATIONS ARE INEFFECTIVE
     Dates: start: 20130415
  2. ACETAMINOPHEN [Concomitant]
     Active Substance: ACETAMINOPHEN

REACTIONS (6)
  - Autism spectrum disorder [Not Recovered/Not Resolved]
  - Sepsis [Unknown]
  - Foetal exposure during pregnancy [Unknown]
  - Birth trauma [Unknown]
  - Umbilical cord around neck [Unknown]
  - Jaundice [Unknown]

NARRATIVE: CASE EVENT DATE: 20201219
